FAERS Safety Report 7238714-0 (Version None)
Quarter: 2011Q1

REPORT INFORMATION
  Report Type: 
  Country: None (occurrence: None)
  Receive Date: 20110121
  Receipt Date: 20110111
  Transmission Date: 20110831
  Serious: Yes (Death)
  Sender: FDA-Public Use
  Company Number: CA-ACTELION-A-CH2011-43857

PATIENT
  Age: 76 Year
  Sex: Female

DRUGS (3)
  1. TRACLEER [Suspect]
     Dosage: 62.5 MG, BID
     Route: 048
  2. TRACLEER [Suspect]
     Indication: PULMONARY HYPERTENSION
     Dosage: 125 MG, BID
     Route: 048
  3. SILDENAFIL [Concomitant]

REACTIONS (4)
  - PULMONARY HYPERTENSION [None]
  - DISEASE PROGRESSION [None]
  - EXERCISE TEST ABNORMAL [None]
  - VITAL CAPACITY DECREASED [None]
